FAERS Safety Report 9679024 (Version 1)
Quarter: 2013Q4

REPORT INFORMATION
  Report Type: Spontaneous
  Country: DK (occurrence: DK)
  Receive Date: 20131108
  Receipt Date: 20131108
  Transmission Date: 20140711
  Serious: Yes (Other)
  Sender: FDA-Public Use
  Company Number: DK-PFIZER INC-2013318555

PATIENT
  Age: 72 Year
  Sex: Male
  Weight: 92 kg

DRUGS (9)
  1. GABAPENTIN [Suspect]
     Indication: POSTOPERATIVE ANALGESIA
     Route: 048
     Dates: start: 20130909, end: 20130914
  2. PINEX [Concomitant]
     Dates: start: 20130909, end: 20130915
  3. BRUFEN - SLOW RELEASE [Concomitant]
     Dates: start: 20130910, end: 20130912
  4. PERILAX [Concomitant]
     Dates: start: 20130910, end: 20130915
  5. PANTOLOC [Concomitant]
     Dates: start: 20130909, end: 20130915
  6. HJERTEMAGNYL ^DAK^ [Concomitant]
     Dates: start: 20130905
  7. METOPROLOL SUCCINATE [Concomitant]
     Dates: start: 20130905
  8. CEFUROXIM [Concomitant]
     Dates: start: 20130910, end: 20130912
  9. KLEXANE [Concomitant]
     Dates: start: 20130909, end: 20130913

REACTIONS (2)
  - Diplopia [Recovered/Resolved]
  - Extraocular muscle paresis [Unknown]
